FAERS Safety Report 9314171 (Version 1)
Quarter: 2013Q2

REPORT INFORMATION
  Report Type: Spontaneous
  Country: US (occurrence: None)
  Receive Date: 20130524
  Receipt Date: 20130524
  Transmission Date: 20140414
  Serious: Yes (Other)
  Sender: FDA-Public Use
  Company Number: None

PATIENT
  Age: 17 Year
  Sex: Male
  Weight: 56.25 kg

DRUGS (2)
  1. MINOCYCLINE [Suspect]
     Dates: start: 200708, end: 20120803
  2. MINOCYCLINE [Suspect]

REACTIONS (14)
  - Migraine [None]
  - Aphasia [None]
  - Weight decreased [None]
  - Headache [None]
  - Chest discomfort [None]
  - Musculoskeletal chest pain [None]
  - Oral mucosal blistering [None]
  - Photosensitivity reaction [None]
  - Panic disorder [None]
  - Arthralgia [None]
  - Myalgia [None]
  - Abdominal pain upper [None]
  - Anxiety [None]
  - Fear of eating [None]
